FAERS Safety Report 20512917 (Version 1)
Quarter: 2022Q1

REPORT INFORMATION
  Report Type: Report from Study
  Country: US (occurrence: US)
  Receive Date: 20220224
  Receipt Date: 20220224
  Transmission Date: 20220424
  Serious: Yes (Hospitalization)
  Sender: FDA-Public Use
  Company Number: US-PFIZER INC-202200186289

PATIENT
  Age: 69 Year
  Sex: Male
  Weight: 89.9 kg

DRUGS (9)
  1. PF-06863135 [Suspect]
     Active Substance: PF-06863135
     Indication: Plasma cell myeloma
     Dosage: 12 MG, ONCE
     Route: 058
     Dates: start: 20211213, end: 20211213
  2. PF-06863135 [Suspect]
     Active Substance: PF-06863135
     Dosage: 32 MG, ONCE
     Route: 058
     Dates: start: 20211216, end: 20211216
  3. PF-06863135 [Suspect]
     Active Substance: PF-06863135
     Dosage: 76 MG, ONCE
     Route: 058
     Dates: start: 20211221, end: 20211221
  4. PF-06863135 [Suspect]
     Active Substance: PF-06863135
     Dosage: 76 MG, ONCE
     Route: 058
     Dates: start: 20211228, end: 20211228
  5. PF-06863135 [Suspect]
     Active Substance: PF-06863135
     Dosage: 76 MG, ONCE
     Route: 058
     Dates: start: 20220103, end: 20220103
  6. PF-06863135 [Suspect]
     Active Substance: PF-06863135
     Dosage: 76 MG, ONCE
     Route: 058
     Dates: start: 20220110, end: 20220110
  7. PF-06863135 [Suspect]
     Active Substance: PF-06863135
     Dosage: 76 MG, ONCE
     Route: 058
     Dates: start: 20220117, end: 20220117
  8. PF-06863135 [Suspect]
     Active Substance: PF-06863135
     Dosage: 76 MG, ONCE
     Route: 058
     Dates: start: 20220124, end: 20220124
  9. MEDROL [Suspect]
     Active Substance: METHYLPREDNISOLONE
     Indication: Fungal skin infection
     Dosage: 4 MG, QD, 6-5-4-3-2-1 TAPER
     Route: 048
     Dates: start: 20220118, end: 20220123

REACTIONS (1)
  - Encephalopathy [Recovered/Resolved]

NARRATIVE: CASE EVENT DATE: 20220130
